FAERS Safety Report 7997335-2 (Version None)
Quarter: 2011Q4

REPORT INFORMATION
  Report Type: 
  Country: None (occurrence: None)
  Receive Date: 20111221
  Receipt Date: 20111213
  Transmission Date: 20120403
  Serious: Yes (Hospitalization)
  Sender: FDA-Public Use
  Company Number: FR-SANOFI-AVENTIS-2011SA081482

PATIENT
  Age: 64 Year
  Sex: Male

DRUGS (8)
  1. KEPPRA [Concomitant]
     Route: 048
  2. SOTALOL HCL [Concomitant]
     Route: 048
  3. MIXTARD HUMAN 70/30 [Concomitant]
     Route: 051
  4. URBANYL [Concomitant]
     Route: 048
  5. ATORVASTATIN CALCIUM [Concomitant]
     Route: 048
  6. PREVISCAN [Suspect]
     Route: 048
     Dates: start: 20020101, end: 20110321
  7. PLAVIX [Suspect]
     Route: 048
     Dates: start: 20091105, end: 20110301
  8. NEXIUM [Concomitant]
     Route: 048

REACTIONS (1)
  - INTERNATIONAL NORMALISED RATIO INCREASED [None]
